FAERS Safety Report 19042308 (Version 1)
Quarter: 2021Q1

REPORT INFORMATION
  Report Type: Report from Study
  Country: MX (occurrence: MX)
  Receive Date: 20210322
  Receipt Date: 20210322
  Transmission Date: 20210420
  Serious: Yes (Other)
  Sender: FDA-Public Use
  Company Number: NVSC2021MX062397

PATIENT
  Sex: Male
  Weight: 91 kg

DRUGS (1)
  1. COSENTYX [Suspect]
     Active Substance: SECUKINUMAB
     Indication: ANKYLOSING SPONDYLITIS
     Dosage: 1 DF, QW
     Route: 058
     Dates: start: 201811, end: 201812

REACTIONS (2)
  - Muscle contracture [Unknown]
  - Intervertebral disc protrusion [Unknown]
